FAERS Safety Report 5747969-0 (Version None)
Quarter: 2008Q2

REPORT INFORMATION
  Report Type: 
  Country: None (occurrence: None)
  Receive Date: 20080523
  Receipt Date: 20080514
  Transmission Date: 20081010
  Serious: Yes (Hospitalization)
  Sender: FDA-Public Use
  Company Number: JP-ROCHE-561251

PATIENT
  Age: 67 Year
  Sex: Female
  Weight: 43 kg

DRUGS (3)
  1. REBETOL (NON-ROCHE/NON-COMPARATOR) [Suspect]
     Route: 048
  2. PEG-INTRON [Suspect]
     Dosage: REDUCED DOSE
     Route: 058
  3. PEG-INTRON [Suspect]
     Route: 058

REACTIONS (3)
  - DISSEMINATED INTRAVASCULAR COAGULATION [None]
  - MUSCLE ABSCESS [None]
  - RENAL FAILURE ACUTE [None]
